FAERS Safety Report 4332648-7 (Version None)
Quarter: 2004Q1

REPORT INFORMATION
  Report Type: 
  Country: None (occurrence: None)
  Receive Date: 20040330
  Receipt Date: 20040316
  Transmission Date: 20041129
  Serious: Yes (Life-Threatening, Hospitalization)
  Sender: FDA-Public Use
  Company Number: 2004-BP-02119AU

PATIENT
  Age: 45 Year
  Sex: Female

DRUGS (2)
  1. MOBIC [Suspect]
     Indication: SPONDYLITIS
     Dosage: 15 MG (15 MG, 1 TABLET POS DAILY) PO
     Route: 048
     Dates: start: 20040309, end: 20040310
  2. MAXOLON (METOCLOPRAMIDE HYDROCHLORIDE) (TA) [Concomitant]

REACTIONS (1)
  - ANAPHYLACTIC REACTION [None]
